FAERS Safety Report 4984467-6 (Version None)
Quarter: 2006Q2

REPORT INFORMATION
  Report Type: 
  Country: None (occurrence: None)
  Receive Date: 20060427
  Receipt Date: 20060418
  Transmission Date: 20061013
  Serious: Yes (Hospitalization)
  Sender: FDA-Public Use
  Company Number: GB-GLAXOSMITHKLINE-B0420549A

PATIENT
  Sex: Male

DRUGS (1)
  1. FLIXONASE [Suspect]
     Indication: RHINITIS ALLERGIC
     Route: 045
     Dates: start: 20060101, end: 20060101

REACTIONS (9)
  - ANAPHYLACTIC REACTION [None]
  - ANGIONEUROTIC OEDEMA [None]
  - ASTHMA [None]
  - BRONCHOSPASM [None]
  - ERYTHEMA [None]
  - MALAISE [None]
  - PERIORBITAL OEDEMA [None]
  - TACHYCARDIA [None]
  - URTICARIA [None]
